FAERS Safety Report 4463014-1 (Version None)
Quarter: 2004Q3

REPORT INFORMATION
  Report Type: 
  Country: None (occurrence: None)
  Receive Date: 20040928
  Receipt Date: 20040922
  Transmission Date: 20050211
  Serious: Yes (Life-Threatening)
  Sender: FDA-Public Use
  Company Number: 2004AP03727

PATIENT
  Age: 73 Year
  Sex: Male

DRUGS (3)
  1. XYLOCAINE [Suspect]
     Dosage: 100 MG DAILY
     Dates: start: 20030508, end: 20030508
  2. ANTITOXIC SERUM [Suspect]
     Dates: start: 20030501
  3. ADRENAL HORMONE PREPARATIONS [Concomitant]

REACTIONS (3)
  - BILIARY TRACT DISORDER [None]
  - CARDIO-RESPIRATORY ARREST [None]
  - NERVOUS SYSTEM DISORDER [None]
